FAERS Safety Report 14336873 (Version 2)
Quarter: 2018Q1

REPORT INFORMATION
  Report Type: Spontaneous
  Country: FR (occurrence: FR)
  Receive Date: 20171229
  Receipt Date: 20180207
  Transmission Date: 20180509
  Serious: Yes (Hospitalization)
  Sender: FDA-Public Use
  Company Number: FR-AUROBINDO-AUR-APL-2017-47575

PATIENT
  Age: 20 Day
  Sex: Female
  Weight: 3.67 kg

DRUGS (2)
  1. LAMOTRIGINE ARROW [Suspect]
     Active Substance: LAMOTRIGINE
     Indication: NEURODEVELOPMENTAL DISORDER
     Dosage: 35 MG, UNK
     Route: 048
     Dates: start: 20171028, end: 20171111
  2. KEPPRA [Concomitant]
     Active Substance: LEVETIRACETAM
     Indication: NEURODEVELOPMENTAL DISORDER
     Route: 048
     Dates: start: 20171025

REACTIONS (6)
  - Rash maculo-papular [Recovered/Resolved]
  - Product use in unapproved indication [Recovered/Resolved]
  - Convulsions local [Recovered/Resolved]
  - Drug level increased [Recovered/Resolved]
  - Prescribed overdose [Recovered/Resolved]
  - Product use issue [Recovered/Resolved]

NARRATIVE: CASE EVENT DATE: 20171028
